FAERS Safety Report 4333050-4 (Version None)
Quarter: 2004Q2

REPORT INFORMATION
  Report Type: 
  Country: None (occurrence: None)
  Receive Date: 20040406
  Receipt Date: 20040106
  Transmission Date: 20050107
  Serious: Yes (Other)
  Sender: FDA-Public Use
  Company Number: US-ROCHE-355335

PATIENT
  Age: 48 Year
  Sex: Male
  Weight: 72.6 kg

DRUGS (2)
  1. PEGASYS [Suspect]
     Indication: HEPATITIS C
     Route: 058
     Dates: start: 20030109
  2. THYMOSIN ALPHA 1 [Concomitant]
     Indication: HEPATITIS C
     Route: 058
     Dates: start: 20030109

REACTIONS (1)
  - HYPERTRIGLYCERIDAEMIA [None]
